FAERS Safety Report 7905840-X (Version None)
Quarter: 2011Q4

REPORT INFORMATION
  Report Type: 
  Country: None (occurrence: None)
  Receive Date: 20111108
  Receipt Date: 20111025
  Transmission Date: 20120403
  Serious: Yes (Life-Threatening)
  Sender: FDA-Public Use
  Company Number: US-ACCORD-010727

PATIENT
  Age: 80 Year
  Sex: Female

DRUGS (4)
  1. SERTRALINE HYDROCHLORIDE [Concomitant]
  2. CLONAZEPAM [Suspect]
     Indication: SOMNOLENCE
     Dosage: 1.00-MG-1.0 DAYS/ORAL
     Route: 048
     Dates: start: 20100913, end: 20110814
  3. HYDROCHLORTHIAZID (HYDROCHLORTHIAZID) [Concomitant]
  4. METOPROLOL TARTRATE [Concomitant]

REACTIONS (2)
  - SOMNOLENCE [None]
  - ROAD TRAFFIC ACCIDENT [None]
